FAERS Safety Report 9482808 (Version 4)
Quarter: 2014Q1

REPORT INFORMATION
  Report Type: Spontaneous
  Country: US (occurrence: US)
  Receive Date: 20130828
  Receipt Date: 20140212
  Transmission Date: 20141002
  Serious: Yes (Life-Threatening, Hospitalization, Other)
  Sender: FDA-Public Use
  Company Number: US-BAYER-2013-103813

PATIENT
  Age: 22 Year
  Sex: Female
  Weight: 53.52 kg

DRUGS (3)
  1. MIRENA [Suspect]
     Indication: CONTRACEPTION
     Dosage: 20 MCG/24HR, CONT
     Route: 015
     Dates: start: 20120111, end: 20120920
  2. MIRENA [Suspect]
     Indication: CONTRACEPTION
     Dosage: 20 MCG/24HR, CONT
     Route: 015
     Dates: start: 20120920, end: 20120920
  3. ZOLOFT [Concomitant]
     Dosage: 12.5 MG, EVERY DAY
     Route: 048

REACTIONS (11)
  - Uterine perforation [None]
  - Infection [None]
  - Menorrhagia [Recovered/Resolved]
  - Abdominal pain [None]
  - Injury [None]
  - General physical health deterioration [None]
  - Stress [None]
  - Anxiety [None]
  - Anhedonia [None]
  - Abdominal pain lower [None]
  - Incision site pain [None]
